FAERS Safety Report 8809911 (Version 3)
Quarter: 2012Q4

REPORT INFORMATION
  Report Type: Report from Study
  Country: US (occurrence: US)
  Receive Date: 20120926
  Receipt Date: 20121009
  Transmission Date: 20130627
  Serious: Yes (Hospitalization, Other)
  Sender: FDA-Public Use
  Company Number: US-PFIZER INC-2012234148

PATIENT
  Age: 73 Year
  Sex: Male
  Weight: 81.63 kg

DRUGS (11)
  1. ALDACTONE [Suspect]
     Dosage: UNK
  2. DIOVAN [Suspect]
  3. EFFIENT [Suspect]
     Indication: ACUTE CORONARY SYNDROME
     Dosage: UNK
     Dates: start: 20100616, end: 20110525
  4. TOPROL [Concomitant]
     Dosage: UNK
  5. LIPITOR [Concomitant]
     Dosage: UNK
  6. LASIX [Concomitant]
     Dosage: UNK
  7. HUMULIN N [Concomitant]
  8. NITROQUICK [Concomitant]
     Dosage: UNK
  9. HUMULIN R [Concomitant]
     Dosage: UNK
  10. NORCO [Concomitant]
     Dosage: UNK
  11. PREDNISONE [Concomitant]

REACTIONS (3)
  - Syncope [Recovered/Resolved]
  - Urinary tract infection [Recovered/Resolved]
  - Pneumonia [Recovered/Resolved]
